FAERS Safety Report 9723584 (Version 2)
Quarter: 2013Q4

REPORT INFORMATION
  Report Type: Spontaneous
  Country: FR (occurrence: FR)
  Receive Date: 20131202
  Receipt Date: 20131226
  Transmission Date: 20140711
  Serious: Yes (Life-Threatening, Hospitalization)
  Sender: FDA-Public Use
  Company Number: FR-PFIZER INC-2013339973

PATIENT
  Age: 68 Year
  Sex: Male
  Weight: 75 kg

DRUGS (3)
  1. CRIZOTINIB [Suspect]
     Indication: LUNG NEOPLASM MALIGNANT
     Dosage: 500 MG
     Dates: start: 20130923, end: 20131013
  2. DIAMICRON [Concomitant]
     Indication: DIABETES MELLITUS
     Dosage: 120 MG, 1X/DAY
     Route: 048
  3. JANUMET [Concomitant]
     Indication: DIABETES MELLITUS
     Dosage: 1 DF, 2X/DAY

REACTIONS (1)
  - Pleuropericarditis [Not Recovered/Not Resolved]
